FAERS Safety Report 12996571 (Version 2)
Quarter: 2016Q4

REPORT INFORMATION
  Report Type: Spontaneous
  Country: CN (occurrence: CN)
  Receive Date: 20161204
  Receipt Date: 20161214
  Transmission Date: 20170207
  Serious: Yes (Life-Threatening, Other)
  Sender: FDA-Public Use
  Company Number: CN-GLAXOSMITHKLINE-CN2016GSK176316

PATIENT
  Age: 65 Year
  Sex: Male
  Weight: 75 kg

DRUGS (7)
  1. SERETIDE [Suspect]
     Active Substance: FLUTICASONE PROPIONATE\SALMETEROL XINAFOATE
     Dosage: UNK
     Route: 055
  2. SERETIDE [Suspect]
     Active Substance: FLUTICASONE PROPIONATE\SALMETEROL XINAFOATE
     Dosage: UNK, 60 PUFFS, MANUFACTURED IN FRANCE
     Route: 055
     Dates: start: 20161128
  3. SALBUTAMOL TABLETS [Concomitant]
     Indication: EMPHYSEMA
     Dosage: UNK
     Route: 048
  4. SERETIDE [Suspect]
     Active Substance: FLUTICASONE PROPIONATE\SALMETEROL XINAFOATE
     Indication: BRONCHITIS
     Dosage: UNK, START TO USE IN JUN OR JUL OF 2016
     Route: 055
     Dates: start: 2016
  5. DANSHEN DRIPPING PILLS [Suspect]
     Active Substance: HERBALS
     Indication: MYOCARDIAL ISCHAEMIA
     Dosage: 10 DF, QD IRREGULARLY
  6. SALBUTAMOL TABLETS [Concomitant]
     Indication: BRONCHITIS
  7. SERETIDE [Suspect]
     Active Substance: FLUTICASONE PROPIONATE\SALMETEROL XINAFOATE
     Indication: EMPHYSEMA
     Dosage: 1 PUFF(S), WHEN HAD SYMPTOMS, STARTED 3-4 YEARS AGO
     Route: 055

REACTIONS (4)
  - Concomitant disease aggravated [Unknown]
  - Drug dependence [Unknown]
  - Drug ineffective for unapproved indication [Unknown]
  - Product use issue [Unknown]

NARRATIVE: CASE EVENT DATE: 2016
